FAERS Safety Report 8974631 (Version 1)
Quarter: 2012Q4

REPORT INFORMATION
  Report Type: 
  Country: US (occurrence: US)
  Receive Date: 20121219
  Receipt Date: 20121219
  Transmission Date: 20130627
  Serious: Yes (Death, Hospitalization, Other)
  Sender: FDA-Public Use
  Company Number: US-OTSUKA-US-2012-11811

PATIENT
  Age: 84 Year
  Sex: Female

DRUGS (15)
  1. SAMSCA [Suspect]
     Indication: HYPONATRAEMIA
     Dosage: 15 Mg milligram(s), UNK
     Route: 048
     Dates: start: 20121119, end: 20121119
  2. COREG [Concomitant]
  3. LOVASTATIN [Concomitant]
  4. LISINOPRIL [Concomitant]
  5. LEVOTHYROXINE [Concomitant]
  6. PHENERGAN [Concomitant]
     Dosage: UNK, prn
  7. PROTONIX [Concomitant]
  8. CARAFATE [Concomitant]
  9. ALBUTEROL SULFATE [Concomitant]
  10. ADVAIR [Concomitant]
  11. XANAX [Concomitant]
  12. CELEXA [Concomitant]
     Dosage: UNK
     Dates: end: 201211
  13. MAXIPIME [Concomitant]
     Dosage: 1 UNK, q12hr
  14. CLEOCIN [Concomitant]
  15. LEVAQUIN [Concomitant]

REACTIONS (7)
  - Rapid correction of hyponatraemia [Fatal]
  - Hyponatraemia [Fatal]
  - Chronic obstructive pulmonary disease [Fatal]
  - Respiratory failure [Fatal]
  - Mental status changes [Fatal]
  - Convulsion [Fatal]
  - Electrolyte imbalance [Fatal]
